FAERS Safety Report 5159175-1 (Version None)
Quarter: 2006Q4

REPORT INFORMATION
  Report Type: 
  Country: None (occurrence: None)
  Receive Date: 20061114
  Receipt Date: 20061031
  Transmission Date: 20070319
  Serious: Yes (Hospitalization)
  Sender: FDA-Public Use
  Company Number: RB-4278-2006

PATIENT
  Age: 63 Year
  Sex: 0

DRUGS (17)
  1. SUBOXONE [Suspect]
     Dosage: SUBLINGUAL
     Route: 060
     Dates: start: 20061010, end: 20061010
  2. SONATA [Concomitant]
  3. PREGABALIN [Concomitant]
  4. PRILOSEC [Concomitant]
  5. DESYREL [Concomitant]
  6. RITALIN [Concomitant]
  7. WELLBUTRIN [Concomitant]
  8. SYNTHROID [Concomitant]
  9. XANAX [Concomitant]
  10. CLONIDINE [Concomitant]
  11. ACTIQ [Concomitant]
  12. FOSAMAX [Concomitant]
  13. GLUCOSAMINE [Concomitant]
  14. PROZAC [Concomitant]
  15. MINERAL SUPPLEMENTS [Concomitant]
  16. MOBIC [Concomitant]
  17. PHENOTHIAZINE [Concomitant]

REACTIONS (5)
  - CONVULSION [None]
  - DEHYDRATION [None]
  - ELECTROLYTE IMBALANCE [None]
  - NAUSEA [None]
  - VOMITING [None]
